FAERS Safety Report 5471684-4 (Version None)
Quarter: 2007Q3

REPORT INFORMATION
  Report Type: 
  Country: None (occurrence: None)
  Receive Date: 20070928
  Receipt Date: 20070329
  Transmission Date: 20080115
  Serious: No
  Sender: FDA-Public Use
  Company Number: US-BRISTOL-MYERS SQUIBB COMPANY-13732177

PATIENT
  Age: 75 Year
  Sex: Male

DRUGS (25)
  1. DEFINITY [Suspect]
     Indication: ECHOCARDIOGRAM
     Dates: start: 20070329, end: 20070329
  2. ZITHROMAX [Concomitant]
  3. NOVOLIN 50/50 [Concomitant]
  4. FLOMAX [Concomitant]
  5. ZETIA [Concomitant]
  6. COZAAR [Concomitant]
  7. LIPITOR [Concomitant]
  8. QUININE SULFATE [Concomitant]
  9. COUMADIN [Concomitant]
  10. LEVOBUNOLOL HCL [Concomitant]
  11. ALPHAGAN [Concomitant]
     Route: 047
  12. CLEOCIN HYDROCHLORIDE [Concomitant]
  13. CLONIDINE HCL [Concomitant]
  14. CALCITRIOL [Concomitant]
  15. APAP TAB [Concomitant]
  16. LANOXIN [Concomitant]
  17. FUROSEMIDE [Concomitant]
  18. FOLGARD [Concomitant]
  19. NITROQUICK [Concomitant]
  20. PROSCAR [Concomitant]
  21. ACTOS [Concomitant]
  22. GLUCOSAMINE [Concomitant]
  23. ZANTAC [Concomitant]
  24. MUCINEX [Concomitant]
  25. CENTRUM [Concomitant]

REACTIONS (1)
  - BACK PAIN [None]
